FAERS Safety Report 13021059 (Version 4)
Quarter: 2017Q1

REPORT INFORMATION
  Report Type: Spontaneous
  Country: JP (occurrence: JP)
  Receive Date: 20161213
  Receipt Date: 20170208
  Transmission Date: 20170428
  Serious: Yes (Death)
  Sender: FDA-Public Use
  Company Number: JP-ROCHE-1866602

PATIENT
  Age: 76 Year
  Sex: Male
  Weight: 63 kg

DRUGS (11)
  1. HERBAL NOS [Concomitant]
     Active Substance: HERBALS
     Route: 048
     Dates: start: 20100604
  2. OPDIVO [Suspect]
     Active Substance: NIVOLUMAB
     Indication: LUNG ADENOCARCINOMA
     Dosage: DOSAGE IS UNCERTAIN.
     Route: 065
     Dates: start: 20160324, end: 20160616
  3. OLMETEC [Concomitant]
     Active Substance: OLMESARTAN MEDOXOMIL
     Indication: HYPERTENSION
     Route: 048
     Dates: start: 20160726
  4. ADALAT [Concomitant]
     Active Substance: NIFEDIPINE
     Indication: HYPERTENSION
     Route: 048
     Dates: start: 20140902
  5. AZUNOL GARGLE [Concomitant]
     Dosage: DOSAGE IS UNCERTAIN.
     Route: 049
     Dates: start: 20141031
  6. WYPAX [Concomitant]
     Active Substance: LORAZEPAM
     Route: 048
  7. BELSOMRA [Concomitant]
     Active Substance: SUVOREXANT
     Route: 048
     Dates: start: 20160201
  8. URSO [Concomitant]
     Active Substance: URSODIOL
     Route: 048
  9. TARCEVA [Suspect]
     Active Substance: ERLOTINIB HYDROCHLORIDE
     Indication: NON-SMALL CELL LUNG CANCER
     Route: 048
     Dates: start: 20160721, end: 20161120
  10. TETRAMIDE [Concomitant]
     Active Substance: MIANSERIN
     Route: 048
  11. AVASTIN [Suspect]
     Active Substance: BEVACIZUMAB
     Indication: NON-SMALL CELL LUNG CANCER
     Dosage: TREATMENT LINE: 5TH LINE?COMPLETED TREATMENT CYCLE NUMBER: THREE TIMES
     Route: 041
     Dates: start: 20160721, end: 20160923

REACTIONS (6)
  - Chronic hepatitis [Fatal]
  - Lung disorder [Fatal]
  - Lymphangiosis carcinomatosa [Fatal]
  - Cardiac hypertrophy [Fatal]
  - Lung adenocarcinoma [Fatal]
  - Cholelithiasis [Unknown]

NARRATIVE: CASE EVENT DATE: 20161117
